FAERS Safety Report 6930009-5 (Version None)
Quarter: 2010Q3

REPORT INFORMATION
  Report Type: 
  Country: None (occurrence: None)
  Receive Date: 20100818
  Receipt Date: 20100805
  Transmission Date: 20110219
  Serious: Yes (Disabling, Other)
  Sender: FDA-Public Use
  Company Number: US-ELI_LILLY_AND_COMPANY-US201008002333

PATIENT
  Sex: Male

DRUGS (3)
  1. ZYPREXA [Suspect]
     Indication: POST-TRAUMATIC STRESS DISORDER
  2. CYMBALTA [Suspect]
     Indication: MAJOR DEPRESSION
     Dosage: 90 MG, UNK
     Dates: end: 20100802
  3. EFFEXOR [Concomitant]

REACTIONS (19)
  - CRYING [None]
  - DRUG WITHDRAWAL SYNDROME [None]
  - EYE INJURY [None]
  - HYPERHIDROSIS [None]
  - JOINT INJURY [None]
  - LETHARGY [None]
  - MALAISE [None]
  - NAUSEA [None]
  - NECK INJURY [None]
  - OFF LABEL USE [None]
  - OVERDOSE [None]
  - PAIN [None]
  - PARAESTHESIA [None]
  - POST-TRAUMATIC STRESS DISORDER [None]
  - SNORING [None]
  - SPINAL COLUMN INJURY [None]
  - TINNITUS [None]
  - VISUAL IMPAIRMENT [None]
  - WEIGHT INCREASED [None]
